FAERS Safety Report 10066614 (Version 2)
Quarter: 2014Q2

REPORT INFORMATION
  Report Type: Spontaneous
  Country: US (occurrence: US)
  Receive Date: 20140408
  Receipt Date: 20140408
  Transmission Date: 20141212
  Serious: Yes (Hospitalization)
  Sender: FDA-Public Use
  Company Number: US-TMC-CABO-14003852

PATIENT
  Sex: Male

DRUGS (6)
  1. COMETRIQ [Suspect]
     Indication: THYROID CANCER
     Dosage: 140 MG, QD
     Route: 048
     Dates: start: 20130127, end: 201401
  2. COMETRIQ [Suspect]
     Dosage: 140 MG, QD
     Route: 048
     Dates: start: 20140202
  3. SYNTHROID [Concomitant]
  4. DIOVAN [Concomitant]
  5. AMLODIPINE [Concomitant]
  6. ZOMETA [Concomitant]

REACTIONS (2)
  - Cerebrovascular accident [Unknown]
  - Blood pressure inadequately controlled [Unknown]
